FAERS Safety Report 11312053 (Version 1)
Quarter: 2015Q3

REPORT INFORMATION
  Report Type: Spontaneous
  Country: DE (occurrence: DE)
  Receive Date: 20150727
  Receipt Date: 20150727
  Transmission Date: 20151125
  Serious: Yes (Other)
  Sender: FDA-Public Use
  Company Number: DE-JNJFOC-20150709133

PATIENT
  Age: 34 Year
  Sex: Female
  Weight: 64 kg

DRUGS (12)
  1. RISPERDAL [Suspect]
     Active Substance: RISPERIDONE
     Indication: ANXIETY
     Route: 048
  2. TAVOR [Suspect]
     Active Substance: LORAZEPAM
     Indication: SUICIDE ATTEMPT
     Dosage: IF REQUIRED
     Route: 048
  3. TAVOR [Suspect]
     Active Substance: LORAZEPAM
     Indication: PANIC REACTION
     Dosage: DOSE BETWEEN 30 TO 75 MG
     Route: 048
  4. FOLSAURE [Concomitant]
     Active Substance: FOLIC ACID
     Indication: PROPHYLAXIS OF NEURAL TUBE DEFECT
     Route: 048
  5. AMOXICLAV [Suspect]
     Active Substance: AMOXICILLIN\CLAVULANIC ACID
     Indication: BRONCHITIS
     Route: 048
  6. PARACETAMOL [Suspect]
     Active Substance: ACETAMINOPHEN
     Indication: BRONCHITIS
     Route: 048
  7. IBUPROFEN. [Suspect]
     Active Substance: IBUPROFEN
     Indication: BRONCHITIS
     Route: 048
  8. IBUPROFEN. [Suspect]
     Active Substance: IBUPROFEN
     Route: 048
  9. SERTRALINE [Suspect]
     Active Substance: SERTRALINE HYDROCHLORIDE
     Indication: DEPRESSION
     Route: 048
     Dates: start: 20140328, end: 20141211
  10. PARACETAMOL [Suspect]
     Active Substance: ACETAMINOPHEN
     Route: 048
  11. TAVOR [Suspect]
     Active Substance: LORAZEPAM
     Indication: SUICIDE ATTEMPT
     Dosage: DOSE BETWEEN 30 TO 75 MG
     Route: 048
  12. TAVOR [Suspect]
     Active Substance: LORAZEPAM
     Indication: PANIC REACTION
     Dosage: IF REQUIRED
     Route: 048

REACTIONS (6)
  - Exposure during pregnancy [Unknown]
  - Product use issue [Unknown]
  - Premature rupture of membranes [Unknown]
  - Bronchitis [Unknown]
  - Suicide attempt [Unknown]
  - Pleurisy [Unknown]
